FAERS Safety Report 22519865 (Version 1)
Quarter: 2023Q2

REPORT INFORMATION
  Report Type: Spontaneous
  Country: FI (occurrence: FI)
  Receive Date: 20230605
  Receipt Date: 20230605
  Transmission Date: 20230722
  Serious: Yes (Death, Hospitalization, Other)
  Sender: FDA-Public Use
  Company Number: FI-INCYTE CORPORATION-2023IN005712

PATIENT

DRUGS (2)
  1. TAFASITAMAB [Suspect]
     Active Substance: TAFASITAMAB
     Indication: Diffuse large B-cell lymphoma
     Dosage: UNK
     Route: 065
     Dates: start: 20221006
  2. LENALIDOMIDE [Suspect]
     Active Substance: LENALIDOMIDE
     Indication: Diffuse large B-cell lymphoma
     Dosage: UNK
     Route: 065
     Dates: start: 20221006

REACTIONS (10)
  - Diffuse large B-cell lymphoma [Fatal]
  - Disease progression [Fatal]
  - Cytopenia [Unknown]
  - Pyrexia [Not Recovered/Not Resolved]
  - Thrombocytopenia [Unknown]
  - Pneumonia [Recovered/Resolved]
  - Splenomegaly [Unknown]
  - Performance status decreased [Unknown]
  - Hyperhidrosis [Unknown]
  - Dyspnoea [Unknown]

NARRATIVE: CASE EVENT DATE: 20221027
